FAERS Safety Report 7692578 (Version 4)
Quarter: 2014Q1

REPORT INFORMATION
  Report Type: Spontaneous
  Country: US (occurrence: US)
  Receive Date: 20101206
  Receipt Date: 20140121
  Transmission Date: 20141002
  Serious: Yes (Hospitalization)
  Sender: FDA-Public Use
  Company Number: US-BAYER-2010-001151

PATIENT
  Age: 28 Year
  Sex: Female
  Weight: 77.1 kg

DRUGS (17)
  1. YASMIN [Suspect]
     Indication: PRODUCT USED FOR UNKNOWN INDICATION
     Dosage: UNK
     Dates: start: 2004, end: 200906
  2. OCELLA [Suspect]
     Dosage: UNK
     Dates: start: 2004, end: 200906
  3. CIPROFLOXACIN HYDROCHLORIDE [Concomitant]
     Dosage: 500 MG, UNK
     Route: 048
     Dates: start: 20090316
  4. INDOMETHACIN [Concomitant]
     Dosage: 25 MG, UNK
     Route: 048
     Dates: start: 20090320
  5. AMOXICILLIN [Concomitant]
     Dosage: 500 MG, UNK
     Route: 048
     Dates: start: 20090331
  6. OXYCODONE W/PARACETAMOL [Concomitant]
     Dosage: 5 MG, UNK
     Route: 048
     Dates: start: 20090408
  7. OXYCODONE W/PARACETAMOL [Concomitant]
     Dosage: 325 MG, UNK
     Route: 048
     Dates: start: 20090408
  8. HYDROCODONE W/APAP [Concomitant]
     Dosage: 5 MG, UNK
     Route: 048
     Dates: start: 20090410
  9. HYDROCODONE W/APAP [Concomitant]
     Dosage: 500 MG, UNK
     Route: 048
     Dates: start: 20090410
  10. CEPHALEXIN [Concomitant]
     Dosage: 500 MG, UNK
     Route: 048
     Dates: start: 20090413
  11. HYDROMORPHONE [Concomitant]
     Dosage: 4 MG, UNK
     Route: 048
     Dates: start: 20090410
  12. NAPROXEN [Concomitant]
     Dosage: 500 MG, UNK
     Route: 048
     Dates: start: 20090515
  13. NORTRIPTYLINE HCL [Concomitant]
     Dosage: 10 MG, UNK
     Route: 048
     Dates: start: 20090515
  14. DIAZEPAM [Concomitant]
     Dosage: 10 MG, UNK
     Route: 048
     Dates: start: 20090320, end: 20090611
  15. TRAMADOL HYDROCHLORIDE [Concomitant]
     Dosage: 50 MG, UNK
     Route: 048
     Dates: start: 20090320, end: 20090611
  16. VICODIN [Concomitant]
  17. COLACE [Concomitant]

REACTIONS (2)
  - Cholecystitis chronic [None]
  - Cholelithiasis [None]
